FAERS Safety Report 8888155 (Version 1)
Quarter: 2012Q4

REPORT INFORMATION
  Report Type: 
  Country: US (occurrence: US)
  Receive Date: 20121106
  Receipt Date: 20121106
  Transmission Date: 20130627
  Serious: Yes (Hospitalization)
  Sender: FDA-Public Use
  Company Number: US-AMGEN-USASP2012069385

PATIENT
  Age: 82 Year
  Sex: Female

DRUGS (1)
  1. SENSIPAR [Suspect]
     Indication: HYPERPARATHYROIDISM SECONDARY
     Dosage: 30 mg, qd

REACTIONS (5)
  - Oedema peripheral [Unknown]
  - Accident [Unknown]
  - Abdominal pain upper [Unknown]
  - Blood parathyroid hormone abnormal [Unknown]
  - Nausea [Unknown]
